FAERS Safety Report 7151267-0 (Version None)
Quarter: 2010Q4

REPORT INFORMATION
  Report Type: 
  Country: None (occurrence: None)
  Receive Date: 20101207
  Receipt Date: 20101207
  Transmission Date: 20110411
  Serious: Yes (Other)
  Sender: FDA-Public Use
  Company Number: None

PATIENT
  Age: 49 Year
  Sex: Female
  Weight: 97.977 kg

DRUGS (1)
  1. LEVOTHROID [Suspect]
     Indication: BASEDOW'S DISEASE
     Dosage: 125 MCG ONE DAILY PO
     Route: 048
     Dates: start: 20100709, end: 20100927

REACTIONS (2)
  - DRUG HYPERSENSITIVITY [None]
  - RASH [None]
